FAERS Safety Report 8092436-5 (Version None)
Quarter: 2012Q1

REPORT INFORMATION
  Report Type: 
  Country: None (occurrence: None)
  Receive Date: 20120128
  Receipt Date: 20110831
  Transmission Date: 20120608
  Serious: No
  Sender: FDA-Public Use
  Company Number: US-ABBOTT-11P-163-0851668-00

PATIENT
  Sex: Male
  Weight: 70.37 kg

DRUGS (2)
  1. HUMIRA [Suspect]
     Dates: start: 20110101
  2. HUMIRA [Suspect]
     Indication: CROHN'S DISEASE
     Dates: start: 20080701, end: 20110101

REACTIONS (2)
  - INFLAMMATION [None]
  - POOR QUALITY DRUG ADMINISTERED [None]
